FAERS Safety Report 9036779 (Version 1)
Quarter: 2013Q1

REPORT INFORMATION
  Report Type: Spontaneous
  Country: DK (occurrence: None)
  Receive Date: 20130114
  Receipt Date: 20130114
  Transmission Date: 20140127
  Serious: Yes (Hospitalization)
  Sender: FDA-Public Use
  Company Number: 2013MA000168

PATIENT
  Age: 58 Year
  Sex: Male

DRUGS (7)
  1. MIRTAZAPINE [Suspect]
     Indication: DEPRESSION
     Route: 048
  2. LAMOTRIGINE (LAMOTRIGINE) [Suspect]
     Indication: DEPRESSED MOOD
     Route: 048
  3. ZAPONEX [Suspect]
     Indication: SCHIZOPHRENIA
     Route: 048
     Dates: start: 20120806
  4. KWELLS [Suspect]
     Indication: SALIVARY HYPERSECRETION
     Route: 060
  5. VENLAFAXINE [Suspect]
     Indication: DEPRESSION
     Route: 048
  6. ARIPIPRAZOLE (ARIPIPRAZOLE) [Suspect]
     Route: 048
  7. PROCYCLIDINE [Suspect]
     Indication: EXTRAPYRAMIDAL DISORDER
     Route: 048

REACTIONS (2)
  - Full blood count normal [None]
  - Unevaluable event [None]
